FAERS Safety Report 23037651 (Version 1)
Quarter: 2023Q4

REPORT INFORMATION
  Report Type: Spontaneous
  Country: US (occurrence: US)
  Receive Date: 20231006
  Receipt Date: 20231006
  Transmission Date: 20240110
  Serious: No
  Sender: FDA-Public Use
  Company Number: US-Indivior Limited-INDV-135509-2022

PATIENT
  Age: 41 Year
  Sex: Female

DRUGS (2)
  1. SUBLOCADE [Suspect]
     Active Substance: BUPRENORPHINE
     Indication: Drug dependence
     Dosage: 100 MILLIGRAM, QMO
     Route: 058
     Dates: start: 20220329
  2. SUBLOCADE [Suspect]
     Active Substance: BUPRENORPHINE
     Dosage: HALF OF 100 MG, QMO
     Route: 058
     Dates: start: 20220808

REACTIONS (4)
  - Off label use [Recovered/Resolved]
  - Lethargy [Unknown]
  - Constipation [Unknown]
  - Headache [Not Recovered/Not Resolved]

NARRATIVE: CASE EVENT DATE: 20220101
